FAERS Safety Report 7223206-5 (Version None)
Quarter: 2011Q1

REPORT INFORMATION
  Report Type: 
  Country: None (occurrence: None)
  Receive Date: 20110112
  Receipt Date: 20100302
  Transmission Date: 20110831
  Serious: No
  Sender: FDA-Public Use
  Company Number: US-ALLERGAN-1002819US

PATIENT
  Sex: Female

DRUGS (4)
  1. MULTIVITAMIN [Concomitant]
  2. RESTASIS [Suspect]
     Indication: DRY EYE
     Dosage: 1 GTT, BID
     Dates: start: 20090601, end: 20100201
  3. PROTONIX [Concomitant]
  4. LIPITOR [Concomitant]

REACTIONS (2)
  - LACRIMATION INCREASED [None]
  - OCULAR HYPERAEMIA [None]
